FAERS Safety Report 18367055 (Version 9)
Quarter: 2021Q3

REPORT INFORMATION
  Report Type: Spontaneous
  Country: US (occurrence: US)
  Receive Date: 20201009
  Receipt Date: 20210804
  Transmission Date: 20211014
  Serious: Yes (Other)
  Sender: FDA-Public Use
  Company Number: US-PFIZER INC-2020387698

PATIENT
  Age: 77 Year
  Sex: Female
  Weight: 57.61 kg

DRUGS (16)
  1. RETACRIT [EPOETIN ZETA] [Concomitant]
     Active Substance: ERYTHROPOIETIN
     Indication: HAEMOGLOBIN
     Dosage: UNK
  2. METOPROLOL TARTRATE. [Concomitant]
     Active Substance: METOPROLOL TARTRATE
     Dosage: 50 MG, 1X/DAY
  3. CENTRUM SILVER [ASCORBIC ACID;CALCIUM;MINERALS NOS;RETINOL;TOCOPHERYL [Concomitant]
     Dosage: UNK, 1X/DAY(ONCE IN THE MORNING)
  4. AMLODIPINE [Concomitant]
     Active Substance: AMLODIPINE BESYLATE
     Dosage: 5 MG, 1X/DAY
  5. HYDRALAZINE [Concomitant]
     Active Substance: HYDRALAZINE HYDROCHLORIDE
     Indication: NEPHROLITHIASIS
     Dosage: 25 MG
  6. CALCIUM +D3 [Concomitant]
     Active Substance: CALCIUM\CHOLECALCIFEROL
     Dosage: UNK, 1X/DAY(ONE IN THE MORNING)
  7. VITAMIN D3 [Concomitant]
     Active Substance: CHOLECALCIFEROL
     Dosage: 2600 IU, 1X/DAY(2600 IU AT DINNER)
  8. IBRANCE [Suspect]
     Active Substance: PALBOCICLIB
     Indication: BONE CANCER
     Dosage: 100 MG, CYCLIC (I TAKE IT AT 8:00 AT NIGHT)
     Route: 048
     Dates: start: 20200927
  9. FASLODEX [Concomitant]
     Active Substance: FULVESTRANT
     Indication: BONE CANCER
     Dosage: UNK[SHE GOT IT TWICE IN SEP. ONLY ONCE IN OCT AND ONLY ONCE IN NOV.]
  10. SIMVASTATIN. [Concomitant]
     Active Substance: SIMVASTATIN
     Dosage: 80 MG, 1X/DAY (80MG AT NIGHT; TAKES IT ABOUT 7PM)
  11. FERROUS SULFATE. [Concomitant]
     Active Substance: FERROUS SULFATE
     Dosage: 325 MG, 3X/DAY
  12. FENOFIBRATE. [Concomitant]
     Active Substance: FENOFIBRATE
     Dosage: 145 MG, 1X/DAY(145MG IN THE MORNING)
  13. IBRANCE [Suspect]
     Active Substance: PALBOCICLIB
     Dosage: 100 MG, CYCLIC (100MG ONCE A DAY FOR THREE WEEKS AND THEN OFF FOR ONE WEEK)
     Route: 048
  14. NABUMETONE. [Concomitant]
     Active Substance: NABUMETONE
     Dosage: 750 MG, 2X/DAY(750MG IN THE MORNING AND 750MG AT NIGHT AT DINNER)
  15. ONGLYZA [Concomitant]
     Active Substance: SAXAGLIPTIN HYDROCHLORIDE
     Indication: DIABETES MELLITUS
     Dosage: 5 MG
  16. XGEVA [Concomitant]
     Active Substance: DENOSUMAB
     Indication: BONE CANCER
     Dosage: UNK, [ONCE EVERY THREE MONTHS]

REACTIONS (12)
  - Nervousness [Unknown]
  - Somnolence [Unknown]
  - Dry skin [Unknown]
  - Terminal insomnia [Unknown]
  - Psychiatric symptom [Unknown]
  - Alopecia [Unknown]
  - Insomnia [Unknown]
  - Seizure [Unknown]
  - Feeling abnormal [Unknown]
  - Asthenia [Unknown]
  - Sleep deficit [Unknown]
  - Circadian rhythm sleep disorder [Unknown]

NARRATIVE: CASE EVENT DATE: 202009
